FAERS Safety Report 21231171 (Version 1)
Quarter: 2022Q3

REPORT INFORMATION
  Report Type: Other
  Country: US (occurrence: US)
  Receive Date: 20220819
  Receipt Date: 20220819
  Transmission Date: 20221026
  Serious: Yes (Hospitalization)
  Sender: FDA-Public Use
  Company Number: US-TOLMAR, INC.-22US035928

PATIENT
  Age: 79 Year
  Sex: Male
  Weight: 72 kg

DRUGS (2)
  1. ELIGARD [Suspect]
     Active Substance: LEUPROLIDE ACETATE
     Indication: Prostate cancer
     Dosage: 22.5 MILLIGRAM, EVERY 12 WEEKS
     Route: 058
     Dates: start: 20160422, end: 20180219
  2. ENZALUTAMIDE [Suspect]
     Active Substance: ENZALUTAMIDE
     Indication: Prostate cancer
     Dosage: UNK, QD
     Route: 048
     Dates: start: 20160422, end: 20180202

REACTIONS (2)
  - Pancreatic carcinoma [Not Recovered/Not Resolved]
  - Second primary malignancy [Not Recovered/Not Resolved]

NARRATIVE: CASE EVENT DATE: 20180202
